FAERS Safety Report 6340911-3 (Version None)
Quarter: 2009Q3

REPORT INFORMATION
  Report Type: 
  Country: None (occurrence: None)
  Receive Date: 20090904
  Receipt Date: 20090831
  Transmission Date: 20100115
  Serious: No
  Sender: FDA-Public Use
  Company Number: US-B.I. PHARMACEUTICALS,INC./RIDGEFIELD-2009-BP-10223BP

PATIENT
  Sex: Female

DRUGS (11)
  1. ZANTAC 75 [Suspect]
     Indication: DYSPEPSIA
     Dosage: 75 MG
     Route: 048
     Dates: start: 20090601, end: 20090701
  2. ZANTAC 150 [Suspect]
     Indication: DYSPEPSIA
     Dosage: 150 MG
     Route: 048
     Dates: start: 20090801
  3. PLAVIX [Concomitant]
     Indication: CARDIAC DISORDER
  4. NORVASC [Concomitant]
     Indication: HYPERTENSION
  5. IMDUR [Concomitant]
  6. NIASPAN [Concomitant]
  7. ZOCOR [Concomitant]
  8. CALCIUM [Concomitant]
  9. VITAMINS [Concomitant]
  10. VITAMIN-MINERAL COMPOUND TAB [Concomitant]
  11. ALIGN [Concomitant]

REACTIONS (3)
  - CONSTIPATION [None]
  - DRUG INEFFECTIVE [None]
  - PAIN [None]
